FAERS Safety Report 16063724 (Version 1)
Quarter: 2019Q1

REPORT INFORMATION
  Report Type: Spontaneous
  Country: FR (occurrence: FR)
  Receive Date: 20190312
  Receipt Date: 20190312
  Transmission Date: 20190418
  Serious: Yes (Other)
  Sender: FDA-Public Use
  Company Number: FR-JNJFOC-20190307761

PATIENT
  Age: 5 Decade
  Sex: Female

DRUGS (10)
  1. LYRICA [Concomitant]
     Active Substance: PREGABALIN
     Route: 065
  2. DUROGESIC [Suspect]
     Active Substance: FENTANYL
     Indication: SQUAMOUS CELL CARCINOMA
     Route: 062
  3. DUROGESIC [Suspect]
     Active Substance: FENTANYL
     Indication: SQUAMOUS CELL CARCINOMA
     Route: 062
  4. MOVICOL [Concomitant]
     Active Substance: POLYETHYLENE GLYCOL 3350\POTASSIUM CHLORIDE\SODIUM BICARBONATE\SODIUM CHLORIDE
     Route: 065
  5. DUROGESIC [Suspect]
     Active Substance: FENTANYL
     Indication: SQUAMOUS CELL CARCINOMA
     Route: 062
  6. OXYNORM [Concomitant]
     Active Substance: OXYCODONE HYDROCHLORIDE
     Route: 065
  7. LAROXYL [Concomitant]
     Active Substance: AMITRIPTYLINE HYDROCHLORIDE
     Route: 065
  8. PARACETAMOL [Concomitant]
     Active Substance: ACETAMINOPHEN
     Route: 065
  9. LEXOMIL [Concomitant]
     Active Substance: BROMAZEPAM
     Route: 065
  10. DUROGESIC [Suspect]
     Active Substance: FENTANYL
     Indication: SQUAMOUS CELL CARCINOMA
     Route: 062

REACTIONS (2)
  - Bradyphrenia [Unknown]
  - Respiratory disorder [Unknown]
